FAERS Safety Report 5639868-X (Version None)
Quarter: 2008Q1

REPORT INFORMATION
  Report Type: 
  Country: None (occurrence: None)
  Receive Date: 20080226
  Receipt Date: 20080226
  Transmission Date: 20080703
  Serious: Yes (Other)
  Sender: FDA-Public Use
  Company Number: None

PATIENT
  Age: 43 Year
  Sex: Female
  Weight: 83.9154 kg

DRUGS (1)
  1. CHANTIX [Suspect]
     Indication: SMOKING CESSATION THERAPY
     Dosage: TWICE A DAY PO
     Route: 048
     Dates: start: 20080128, end: 20080225

REACTIONS (4)
  - IMPAIRED DRIVING ABILITY [None]
  - PERIORBITAL DISORDER [None]
  - SENSATION OF PRESSURE [None]
  - VISION BLURRED [None]
